FAERS Safety Report 8598626-7 (Version None)
Quarter: 2012Q3

REPORT INFORMATION
  Report Type: 
  Country: None (occurrence: None)
  Receive Date: 20120816
  Receipt Date: 19900319
  Transmission Date: 20120928
  Serious: Yes (Hospitalization, Other)
  Sender: FDA-Public Use
  Company Number: US-ROCHE-1099782

PATIENT
  Age: 40 Year
  Sex: Male

DRUGS (2)
  1. ACTIVASE [Suspect]
     Indication: PNEUMONIA
  2. ACTIVASE [Suspect]
     Indication: PERICARDITIS
     Dosage: 40 MG/90 ML AT 45 ML PER HOUR
     Route: 042

REACTIONS (6)
  - HYPERHIDROSIS [None]
  - COUGH [None]
  - MUSCULOSKELETAL PAIN [None]
  - RESPIRATORY TRACT CONGESTION [None]
  - SPUTUM DISCOLOURED [None]
  - EXTRASYSTOLES [None]
